FAERS Safety Report 4355924-0 (Version None)
Quarter: 2004Q2

REPORT INFORMATION
  Report Type: 
  Country: None (occurrence: None)
  Receive Date: 20040505
  Receipt Date: 20040421
  Transmission Date: 20050107
  Serious: Yes (Death)
  Sender: FDA-Public Use
  Company Number: 083-20785-04040660

PATIENT
  Age: 63 Year
  Sex: Female

DRUGS (6)
  1. THALIDOMIDE (THALIDOMIDE) (CAPSULES) [Suspect]
     Indication: MULTIPLE MYELOMA
     Dosage: 300 MG MAXIMUM TOLERATING DOSE, DAILY, ORAL
     Route: 048
     Dates: start: 20000501, end: 20010101
  2. DEXAMETHASONE [Concomitant]
  3. CISPLATIN [Concomitant]
  4. ADRIAMYCIN PFS [Concomitant]
  5. CYCLOPHOSPHAMIDE [Concomitant]
  6. ETOPOSIDE [Concomitant]

REACTIONS (2)
  - MALIGNANT NEOPLASM PROGRESSION [None]
  - MULTIPLE MYELOMA [None]
